FAERS Safety Report 20860202 (Version 1)
Quarter: 2022Q2

REPORT INFORMATION
  Report Type: Spontaneous
  Country: US (occurrence: None)
  Receive Date: 20220520
  Receipt Date: 20220520
  Transmission Date: 20220721
  Serious: Yes (Death)
  Sender: FDA-Public Use
  Company Number: None

PATIENT
  Age: 48 Year
  Sex: Female
  Weight: 73.57 kg

DRUGS (15)
  1. ALECENSA [Suspect]
     Active Substance: ALECTINIB HYDROCHLORIDE
     Indication: Lung neoplasm malignant
     Dosage: FREQUENCY : TWICE A DAY;?
     Route: 048
     Dates: start: 202111, end: 20220514
  2. AMITRIPTYLINE HCI [Concomitant]
  3. CIONIDINE [Concomitant]
  4. DESVENLAFAXINE ER [Concomitant]
  5. FOLIC ACID [Concomitant]
  6. FUROSEMIDE [Concomitant]
  7. HYDROCODONE-ACETAMINOPHEN [Concomitant]
  8. JANUMET XR MAGNESIUM OXIDE [Concomitant]
  9. MEMANTINE HCI [Concomitant]
  10. MORPHINE SULFATE [Concomitant]
  11. NICE PURE BAKING SODA POWDER [Concomitant]
  12. PANTOPRAZOLE SODIUM [Concomitant]
  13. PROPRANOLOL HCI ER [Concomitant]
  14. SIMVASTATIN [Concomitant]
  15. XANAX [Concomitant]
     Active Substance: ALPRAZOLAM

REACTIONS (1)
  - Death [None]
